FAERS Safety Report 9316190 (Version 1)
Quarter: 2013Q2

REPORT INFORMATION
  Report Type: Report from Study
  Country: AR (occurrence: AR)
  Receive Date: 20130530
  Receipt Date: 20130530
  Transmission Date: 20140414
  Serious: Yes (Hospitalization)
  Sender: FDA-Public Use
  Company Number: PHHY2013AR054074

PATIENT
  Sex: Male

DRUGS (1)
  1. EXFORGE D [Suspect]
     Indication: HYPERTENSION
     Dosage: 1 DF, (160 MG VALS/ 5 MG AMLO/ 12,5 MG HYDRO) DAILY
     Route: 048
     Dates: start: 201301

REACTIONS (1)
  - Wound infection [Recovering/Resolving]
